FAERS Safety Report 6667165-2 (Version None)
Quarter: 2010Q2

REPORT INFORMATION
  Report Type: 
  Country: None (occurrence: None)
  Receive Date: 20100401
  Receipt Date: 20100401
  Transmission Date: 20101027
  Serious: Yes (Other)
  Sender: FDA-Public Use
  Company Number: None

PATIENT
  Age: 26 Year
  Sex: Female
  Weight: 36 kg

DRUGS (1)
  1. TOPIRAMATE [Suspect]
     Dosage: 250MG TWICE DAILY PO
     Route: 048
     Dates: start: 20081010, end: 20081110

REACTIONS (1)
  - DRUG EFFECT DECREASED [None]
